FAERS Safety Report 16326768 (Version 2)
Quarter: 2019Q2

REPORT INFORMATION
  Report Type: Report from Study
  Country: ES (occurrence: ES)
  Receive Date: 20190517
  Receipt Date: 20190603
  Transmission Date: 20190711
  Serious: Yes (Death, Other)
  Sender: FDA-Public Use
  Company Number: ES-AMGEN-ESPCT2019069021

PATIENT
  Age: 73 Year
  Sex: Male
  Weight: 58 kg

DRUGS (16)
  1. GABAPENTIN. [Concomitant]
     Active Substance: GABAPENTIN
     Indication: PAIN
     Dosage: 308 MILLIGRAM, Q8H
     Route: 048
  2. LORAZEPAM. [Concomitant]
     Active Substance: LORAZEPAM
     Indication: INSOMNIA
  3. CARFILZOMIB [Suspect]
     Active Substance: CARFILZOMIB
     Indication: PLASMA CELL MYELOMA
     Dosage: 113 MICROGRAM, PER CHEMO REGIM
     Route: 042
     Dates: start: 20181016, end: 20190410
  4. DEXAMETHASONE. [Suspect]
     Active Substance: DEXAMETHASONE
     Indication: PLASMA CELL MYELOMA
     Dosage: 80 MILLIGRAM, PER CHEMO REGIM
     Route: 048
     Dates: start: 20181016, end: 20190410
  5. FOLINIC ACID [Concomitant]
     Active Substance: LEUCOVORIN
     Indication: ANAEMIA
     Dosage: 15 MILLIGRAM, QD
     Route: 048
  6. AMOXICILLIN;CLAVULANIC ACID [Concomitant]
     Active Substance: AMOXICILLIN\CLAVULANIC ACID
     Indication: OSTEONECROSIS OF JAW
     Dosage: (1 GRAM/25 MILLIGRAM), Q8H
     Route: 048
     Dates: start: 201802
  7. OMEPRAZOLE. [Concomitant]
     Active Substance: OMEPRAZOLE
     Indication: GASTRITIS PROPHYLAXIS
     Dosage: 20 MILLIGRAM, QD
     Route: 048
  8. HYDROCHLOROTHIAZIDE. [Concomitant]
     Active Substance: HYDROCHLOROTHIAZIDE
     Indication: HYPERTENSION
     Dosage: 25 MILLIGRAM, QD
     Route: 048
  9. ENTECAVIR. [Concomitant]
     Active Substance: ENTECAVIR
     Dosage: 0.5 MILLIGRAM, QD
     Route: 048
  10. PARACETAMOL [Concomitant]
     Active Substance: ACETAMINOPHEN
     Indication: PAIN
     Dosage: 1 GRAM, Q8H
     Route: 048
     Dates: start: 201802
  11. FENTANYL. [Concomitant]
     Active Substance: FENTANYL
     Indication: PAIN
     Dosage: 25 MILLIGRAM/72 H
     Route: 062
     Dates: start: 201804
  12. OPTOVIT [Concomitant]
     Indication: ANAEMIA
     Dosage: UNK UNK, QMO
     Route: 030
  13. LOSARTAN. [Concomitant]
     Active Substance: LOSARTAN
     Indication: HYPERTENSION
     Dosage: 50 MILLIGRAM, QD
     Route: 048
  14. GEMFIBROZIL. [Concomitant]
     Active Substance: GEMFIBROZIL
     Indication: DYSLIPIDAEMIA
     Dosage: 600 MICROGRAM, QD
     Route: 048
  15. CYCLOPHOSPHAMIDE. [Suspect]
     Active Substance: CYCLOPHOSPHAMIDE
     Indication: PLASMA CELL MYELOMA
     Dosage: 483 MICROGRAM, PER CHEMO REGIM
     Route: 042
     Dates: start: 20181016, end: 20190410
  16. CALCIUM [Concomitant]
     Active Substance: CALCIUM
     Indication: PROPHYLAXIS
     Dosage: 1000 MILLIGRAM, QD
     Route: 048

REACTIONS (1)
  - Sudden death [Fatal]

NARRATIVE: CASE EVENT DATE: 20190412
